FAERS Safety Report 25674970 (Version 1)
Quarter: 2025Q3

REPORT INFORMATION
  Report Type: Spontaneous
  Country: EU (occurrence: EU)
  Receive Date: 20250813
  Receipt Date: 20250813
  Transmission Date: 20251021
  Serious: Yes (Other)
  Sender: Kenvue
  Company Number: EU-ELI_LILLY_AND_COMPANY-ES202505002987

PATIENT

DRUGS (2)
  1. LOPERAMIDE HYDROCHLORIDE [Suspect]
     Active Substance: LOPERAMIDE HYDROCHLORIDE
     Indication: Product used for unknown indication
     Route: 065
  2. ABEMACICLIB [Suspect]
     Active Substance: ABEMACICLIB
     Indication: Product used for unknown indication
     Dosage: 150 MG, BID
     Route: 065
     Dates: start: 20250505

REACTIONS (10)
  - Neuropathy peripheral [Unknown]
  - Urinary tract infection [Recovered/Resolved]
  - Chills [Unknown]
  - Hair growth abnormal [Unknown]
  - Balance disorder [Unknown]
  - Feeling abnormal [Unknown]
  - Paraesthesia [Recovering/Resolving]
  - Fatigue [Unknown]
  - Diarrhoea [Unknown]
  - Nausea [Recovering/Resolving]

NARRATIVE: CASE EVENT DATE: 20250505
